FAERS Safety Report 21284007 (Version 1)
Quarter: 2022Q3

REPORT INFORMATION
  Report Type: Spontaneous
  Country: TH (occurrence: TH)
  Receive Date: 20220901
  Receipt Date: 20220901
  Transmission Date: 20221027
  Serious: Yes (Other)
  Sender: FDA-Public Use
  Company Number: TH-STRIDES ARCOLAB LIMITED-2022SP010978

PATIENT
  Age: 70 Year
  Sex: Female

DRUGS (2)
  1. ALPRAZOLAM [Suspect]
     Active Substance: ALPRAZOLAM
     Indication: Product used for unknown indication
     Dosage: UNK, 80 TABLETS OF ALPRAZOLAM AND LORAZEPAM
     Route: 065
  2. LORAZEPAM [Suspect]
     Active Substance: LORAZEPAM
     Indication: Product used for unknown indication
     Dosage: UNK, 80 TABLETS OF ALPRAZOLAM AND LORAZEPAM
     Route: 065

REACTIONS (8)
  - Intentional product misuse [Unknown]
  - Hypopnoea [Unknown]
  - Miosis [Unknown]
  - Areflexia [Unknown]
  - Loss of consciousness [Unknown]
  - Hypothermia [Unknown]
  - Overdose [Unknown]
  - Toxicity to various agents [Unknown]
